FAERS Safety Report 10181442 (Version 1)
Quarter: 2014Q2

REPORT INFORMATION
  Report Type: Spontaneous
  Country: DE (occurrence: DE)
  Receive Date: 20140519
  Receipt Date: 20140519
  Transmission Date: 20141212
  Serious: Yes (Hospitalization)
  Sender: FDA-Public Use
  Company Number: DE-BRISTOL-MYERS SQUIBB COMPANY-20749446

PATIENT
  Sex: Male

DRUGS (1)
  1. FORXIGA [Suspect]
     Dates: start: 201304, end: 2014

REACTIONS (2)
  - Jaundice [Unknown]
  - Liver function test abnormal [Unknown]
